FAERS Safety Report 12399882 (Version 1)
Quarter: 2016Q2

REPORT INFORMATION
  Report Type: Spontaneous
  Country: JP (occurrence: JP)
  Receive Date: 20160524
  Receipt Date: 20160524
  Transmission Date: 20160815
  Serious: Yes (Hospitalization)
  Sender: FDA-Public Use
  Company Number: GXJP2016JP000810

PATIENT
  Age: 90 Year
  Sex: Female

DRUGS (2)
  1. CEFEPIME DIHYDROCHLORIDE FOR INTRAVENOUS INJECTION [Suspect]
     Active Substance: CEFEPIME HYDROCHLORIDE
     Indication: ARTHRITIS BACTERIAL
  2. CEFEPIME DIHYDROCHLORIDE FOR INTRAVENOUS INJECTION [Suspect]
     Active Substance: CEFEPIME HYDROCHLORIDE
     Indication: CELLULITIS
     Route: 042

REACTIONS (3)
  - Status epilepticus [Recovered/Resolved]
  - Staring [Recovered/Resolved]
  - Repetitive speech [Recovered/Resolved]
